FAERS Safety Report 7592217-2 (Version None)
Quarter: 2011Q3

REPORT INFORMATION
  Report Type: 
  Country: None (occurrence: None)
  Receive Date: 20110706
  Receipt Date: 20110623
  Transmission Date: 20111222
  Serious: Yes (Hospitalization, Other)
  Sender: FDA-Public Use
  Company Number: US-ELI_LILLY_AND_COMPANY-US201105001479

PATIENT
  Sex: Female

DRUGS (8)
  1. KLONOPIN [Concomitant]
  2. PAXIL [Concomitant]
  3. FORTEO [Suspect]
     Indication: OSTEOPOROSIS
     Dosage: 20 UG, QD
     Route: 058
     Dates: start: 20100928
  4. CALCIUM CARBONATE [Concomitant]
  5. VITAMIN D [Concomitant]
  6. ARICEPT [Concomitant]
  7. TOVIAZ [Concomitant]
  8. FISH OIL [Concomitant]

REACTIONS (3)
  - SYNCOPE [None]
  - HEAD INJURY [None]
  - FALL [None]
